FAERS Safety Report 9063272 (Version 1)
Quarter: 2013Q1

REPORT INFORMATION
  Report Type: Spontaneous
  Country: FR (occurrence: FR)
  Receive Date: 20130213
  Receipt Date: 20130213
  Transmission Date: 20140127
  Serious: Yes (Other)
  Sender: FDA-Public Use
  Company Number: FR-JNJFOC-20130117047

PATIENT
  Age: 30 Year
  Sex: Female

DRUGS (9)
  1. SUFENTANIL [Suspect]
     Indication: SPINAL ANAESTHESIA
     Route: 008
  2. TRAMADOL [Suspect]
     Indication: PAIN
     Route: 042
  3. BUPIVACAINE [Suspect]
     Indication: SPINAL ANAESTHESIA
     Dosage: 0.5%
     Route: 065
  4. MORPHINE HYDROCHLORIDE [Suspect]
     Indication: CAESAREAN SECTION
     Route: 065
  5. EPHEDRINE [Suspect]
     Indication: BLOOD PRESSURE MANAGEMENT
     Route: 042
  6. NEOSYNEPHRINE [Suspect]
     Indication: BLOOD PRESSURE MANAGEMENT
     Route: 042
  7. AMPICILLIN [Suspect]
     Indication: PRODUCT USED FOR UNKNOWN INDICATION
     Route: 065
  8. OXYTOCIN [Suspect]
     Indication: PRODUCT USED FOR UNKNOWN INDICATION
     Route: 065
  9. PARACETAMOL [Suspect]
     Indication: PAIN
     Route: 065

REACTIONS (8)
  - Hypothermia [Not Recovered/Not Resolved]
  - Oxygen saturation decreased [Recovered/Resolved]
  - Nausea [Not Recovered/Not Resolved]
  - Somnolence [Unknown]
  - Exposure during pregnancy [Unknown]
  - Vomiting [Not Recovered/Not Resolved]
  - Feeling hot [Unknown]
  - Caesarean section [None]
